FAERS Safety Report 8919300 (Version 2)
Quarter: 2013Q1

REPORT INFORMATION
  Report Type: Spontaneous
  Country: US (occurrence: US)
  Receive Date: 20121121
  Receipt Date: 20130116
  Transmission Date: 20140127
  Serious: No
  Sender: FDA-Public Use
  Company Number: US-PFIZER INC-2012286914

PATIENT
  Age: 60 Year
  Sex: Female
  Weight: 113 kg

DRUGS (5)
  1. PREMARIN [Suspect]
     Indication: HORMONE LEVEL ABNORMAL
     Dosage: 0.5 G, 2X/WEEK
     Route: 067
     Dates: start: 20121016, end: 20121105
  2. PREMARIN [Suspect]
     Indication: VULVOVAGINAL RASH
  3. PREMARIN [Suspect]
     Indication: VULVOVAGINAL PRURITUS
  4. PREMARIN [Suspect]
     Indication: VULVOVAGINAL SWELLING
  5. METOPROLOL TARTRATE [Concomitant]
     Indication: HYPERTENSION
     Dosage: 25 MG, 2X/DAY

REACTIONS (1)
  - Drug ineffective [Unknown]
